FAERS Safety Report 23064271 (Version 1)
Quarter: 2023Q4

REPORT INFORMATION
  Report Type: Spontaneous
  Country: PT (occurrence: PT)
  Receive Date: 20231013
  Receipt Date: 20231013
  Transmission Date: 20240110
  Serious: Yes (Other)
  Sender: FDA-Public Use
  Company Number: PT-SUN PHARMACEUTICAL INDUSTRIES LTD-2023R1-410473

PATIENT
  Age: 71 Year
  Sex: Female

DRUGS (1)
  1. ARIPIPRAZOLE [Suspect]
     Active Substance: ARIPIPRAZOLE
     Indication: Dementia
     Dosage: UNK
     Route: 065

REACTIONS (2)
  - Dementia Alzheimer^s type [Unknown]
  - Product use in unapproved indication [Unknown]
